FAERS Safety Report 4267196-6 (Version None)
Quarter: 2004Q1

REPORT INFORMATION
  Report Type: 
  Country: None (occurrence: None)
  Receive Date: 20040107
  Receipt Date: 20031225
  Transmission Date: 20041129
  Serious: Yes (Hospitalization, Other)
  Sender: FDA-Public Use
  Company Number: 200308841

PATIENT
  Age: 39 Year
  Sex: Male

DRUGS (1)
  1. PEPCID AC [Suspect]
     Indication: ABDOMINAL PAIN UPPER
     Dosage: PO
     Route: 048
     Dates: start: 20011101

REACTIONS (5)
  - COMPUTERISED TOMOGRAM ABNORMAL [None]
  - GASTRIC CANCER [None]
  - GASTRIC PERFORATION [None]
  - GASTROINTESTINAL HAEMORRHAGE [None]
  - PERITONITIS [None]
